FAERS Safety Report 13974842 (Version 1)
Quarter: 2017Q3

REPORT INFORMATION
  Report Type: Spontaneous
  Country: US (occurrence: US)
  Receive Date: 20170915
  Receipt Date: 20170915
  Transmission Date: 20171128
  Serious: No
  Sender: FDA-Public Use
  Company Number: US-BRAEBURN PHARMACEUTICALS, INC.-2017BBN00051

PATIENT
  Sex: Male

DRUGS (4)
  1. PROBUPHINE [Suspect]
     Active Substance: BUPRENORPHINE HYDROCHLORIDE
     Indication: DRUG USE DISORDER
     Dosage: 1 TOTAL DOSAGE UNITS, ONCE IN THE LEFT UPPER ARM BETWEEN THE TWO AREAS UNDER THE ARM
     Dates: start: 20170725, end: 20170729
  2. PROBUPHINE [Suspect]
     Active Substance: BUPRENORPHINE HYDROCHLORIDE
     Dosage: 1 TOTAL DOSAGE UNITS, ONCE IN THE LEFT UPPER ARM BETWEEN THE TWO AREAS UNDER THE ARM
     Dates: start: 20170725, end: 20170729
  3. PROBUPHINE [Suspect]
     Active Substance: BUPRENORPHINE HYDROCHLORIDE
     Dosage: 1 TOTAL DOSAGE UNITS, ONCE IN THE LEFT UPPER ARM BETWEEN THE TWO AREAS UNDER THE ARM
     Dates: start: 20170725, end: 20170729
  4. PROBUPHINE [Suspect]
     Active Substance: BUPRENORPHINE HYDROCHLORIDE
     Dosage: 1 TOTAL DOSAGE UNITS, ONCE IN THE LEFT UPPER ARM BETWEEN THE TWO AREAS UNDER THE ARM
     Dates: start: 20170725, end: 20170729

REACTIONS (3)
  - Malaise [Unknown]
  - Nausea [Recovering/Resolving]
  - Therapy cessation [Recovered/Resolved]

NARRATIVE: CASE EVENT DATE: 201707
